FAERS Safety Report 10877394 (Version 1)
Quarter: 2015Q1

REPORT INFORMATION
  Report Type: Spontaneous
  Country: US (occurrence: None)
  Receive Date: 20150224
  Receipt Date: 20150224
  Transmission Date: 20150721
  Serious: Yes (Death)
  Sender: FDA-Public Use
  Company Number: None

PATIENT
  Age: 88 Year
  Sex: Male

DRUGS (2)
  1. NAPROXEN. [Suspect]
     Active Substance: NAPROXEN
     Indication: LIMB DISCOMFORT
     Route: 048
     Dates: start: 20130711
  2. DONEPEZIL [Concomitant]
     Active Substance: DONEPEZIL

REACTIONS (4)
  - Internal haemorrhage [None]
  - Musculoskeletal stiffness [None]
  - Overdose [None]
  - Gastric perforation [None]

NARRATIVE: CASE EVENT DATE: 20130404
